FAERS Safety Report 25633600 (Version 1)
Quarter: 2025Q3

REPORT INFORMATION
  Report Type: Spontaneous
  Country: US (occurrence: None)
  Receive Date: 20250801
  Receipt Date: 20250801
  Transmission Date: 20251021
  Serious: Yes (Disabling)
  Sender: FDA-CTU
  Company Number: None

PATIENT
  Age: 36 Year
  Sex: Male
  Weight: 67.5 kg

DRUGS (2)
  1. DULOXETINE [Suspect]
     Active Substance: DULOXETINE
     Indication: Depression
  2. LAMICTAL [Concomitant]
     Active Substance: LAMOTRIGINE

REACTIONS (9)
  - Sexual dysfunction [None]
  - Anorgasmia [None]
  - Genital hypoaesthesia [None]
  - Erectile dysfunction [None]
  - Cognitive disorder [None]
  - Memory impairment [None]
  - Bradyphrenia [None]
  - Apathy [None]
  - Anhedonia [None]

NARRATIVE: CASE EVENT DATE: 20200605
